FAERS Safety Report 8135461-8 (Version None)
Quarter: 2012Q1

REPORT INFORMATION
  Report Type: 
  Country: None (occurrence: None)
  Receive Date: 20120214
  Receipt Date: 20120130
  Transmission Date: 20120608
  Serious: Yes (Hospitalization)
  Sender: FDA-Public Use
  Company Number: US-ROCHE-795331

PATIENT
  Sex: Female
  Weight: 97.7 kg

DRUGS (30)
  1. ACTEMRA [Suspect]
     Indication: RHEUMATOID ARTHRITIS
     Route: 042
  2. ACTEMRA [Suspect]
     Route: 042
  3. INSULIN [Concomitant]
     Dosage: TDD: 0-8 IU
     Dates: start: 20110805, end: 20110805
  4. ALBUMIN (HUMAN) [Concomitant]
     Dates: start: 20110806, end: 20110806
  5. ACTEMRA [Suspect]
     Route: 042
  6. TRAMADOL HCL [Concomitant]
     Dates: start: 20101217
  7. ACTEMRA [Suspect]
     Route: 042
  8. DARVOCET-N 50 [Concomitant]
     Dosage: DRUG NAME REPORTED AS DARVOCET N-100
  9. VYTORIN [Concomitant]
     Dosage: TDD REPORTED AS 10/40 MG
  10. TYLENOL-500 [Concomitant]
  11. PLACEBO [Suspect]
     Indication: RHEUMATOID ARTHRITIS
     Route: 042
  12. IPRATROPIUM BROMIDE [Concomitant]
     Dates: start: 20101008
  13. LORTAB [Concomitant]
     Dates: start: 20110806
  14. PEPCID [Concomitant]
     Dates: start: 20110803, end: 20110805
  15. ACETAMINOPHEN [Concomitant]
     Dates: start: 20110805, end: 20110805
  16. METHOTREXATE [Concomitant]
  17. METHOTREXATE [Concomitant]
  18. FOLIC ACID [Concomitant]
  19. MORPHINE [Concomitant]
     Dates: start: 20110805, end: 20110805
  20. ACTEMRA [Suspect]
     Route: 042
  21. ASPIRIN [Concomitant]
  22. PLAVIX [Concomitant]
  23. ALBUTEROL SULFATE [Concomitant]
     Dates: start: 20101008
  24. ANCEF [Concomitant]
     Dates: start: 20110805, end: 20110806
  25. ACTEMRA [Suspect]
     Route: 042
  26. PLAVIX [Concomitant]
  27. CALCIUM [Concomitant]
  28. CALCIUM [Concomitant]
  29. GLIMEPIRIDE [Concomitant]
  30. KEFLEX [Concomitant]
     Dates: start: 20110812, end: 20110817

REACTIONS (1)
  - AORTIC ANEURYSM [None]
